FAERS Safety Report 17910936 (Version 1)
Quarter: 2020Q2

REPORT INFORMATION
  Report Type: Spontaneous
  Country: US (occurrence: US)
  Receive Date: 20200617
  Receipt Date: 20200617
  Transmission Date: 20200714
  Serious: Yes (Hospitalization, Disabling, Other)
  Sender: FDA-Public Use
  Company Number: None

PATIENT
  Age: 55 Year
  Sex: Female
  Weight: 131.4 kg

DRUGS (12)
  1. DEXMEDETOMIDINE INFUSION [Concomitant]
     Dates: start: 20200606, end: 20200610
  2. FENTANYL INFUSION [Concomitant]
     Active Substance: FENTANYL
     Dates: start: 20200606
  3. MIDAZOLAM INFUSION [Concomitant]
     Active Substance: MIDAZOLAM HYDROCHLORIDE
     Dates: start: 20200610, end: 20200617
  4. TOCILIZUMAB INJECTION [Concomitant]
     Dates: start: 20200610, end: 20200610
  5. NOREPINEPHRINE INFUSION [Concomitant]
     Dates: start: 20200606, end: 20200617
  6. PROPOFOL INFUSION [Concomitant]
     Active Substance: PROPOFOL
     Dates: start: 20200606, end: 20200613
  7. ROCURONIUM INJECTION [Concomitant]
     Dates: start: 20200606, end: 20200606
  8. AMPICILLIN-SULBACTAM IV [Concomitant]
     Dates: start: 20200607, end: 20200615
  9. AZITHROMYCIN IV [Concomitant]
     Dates: start: 20200606, end: 20200611
  10. REMDESIVIR. [Suspect]
     Active Substance: REMDESIVIR
     Indication: COVID-19 PNEUMONIA
     Route: 040
     Dates: start: 20200608, end: 20200611
  11. VANCOMYCIN INJECTION [Concomitant]
     Active Substance: VANCOMYCIN
     Dates: start: 20200607, end: 20200607
  12. ENOXAPARIN [Concomitant]
     Active Substance: ENOXAPARIN
     Dates: start: 20200607, end: 20200615

REACTIONS (3)
  - Therapy cessation [None]
  - Acute kidney injury [None]
  - Anuria [None]

NARRATIVE: CASE EVENT DATE: 20200610
